FAERS Safety Report 5416276-8 (Version None)
Quarter: 2007Q3

REPORT INFORMATION
  Report Type: 
  Country: None (occurrence: None)
  Receive Date: 20070718
  Receipt Date: 20070221
  Transmission Date: 20080115
  Serious: Yes (Hospitalization, Other)
  Sender: FDA-Public Use
  Company Number: 2007014438

PATIENT
  Age: 67 Year
  Sex: Male
  Weight: 93 kg

DRUGS (1)
  1. CELEBREX [Suspect]
     Indication: OSTEOARTHRITIS
     Dosage: (200 MG,TWO TO FOUR TIMES)
     Dates: start: 19991201

REACTIONS (2)
  - ANXIETY [None]
  - DEEP VEIN THROMBOSIS [None]
